FAERS Safety Report 7560579-8 (Version None)
Quarter: 2011Q2

REPORT INFORMATION
  Report Type: 
  Country: None (occurrence: None)
  Receive Date: 20110621
  Receipt Date: 20110318
  Transmission Date: 20111010
  Serious: No
  Sender: FDA-Public Use
  Company Number: US-ASTRAZENECA-2011SE15477

PATIENT
  Age: 65 Year
  Sex: Male
  Weight: 120.2 kg

DRUGS (7)
  1. ENTOCORT EC [Suspect]
     Indication: COLITIS
     Route: 048
     Dates: start: 20110101
  2. SIMVASTATIN [Concomitant]
  3. DIOVAN [Concomitant]
  4. LIALDA DR [Concomitant]
  5. OXYGEN 3/L MINUTE [Concomitant]
  6. LASIX [Concomitant]
  7. BYSTOLIC [Concomitant]

REACTIONS (2)
  - OEDEMA PERIPHERAL [None]
  - JOINT SWELLING [None]
